FAERS Safety Report 19692462 (Version 9)
Quarter: 2023Q1

REPORT INFORMATION
  Report Type: Report from Study
  Country: US (occurrence: US)
  Receive Date: 20210812
  Receipt Date: 20230214
  Transmission Date: 20230418
  Serious: Yes (Hospitalization, Other)
  Sender: FDA-Public Use
  Company Number: US-JAZZ-2021-US-014525

PATIENT
  Sex: Male

DRUGS (7)
  1. XYREM [Suspect]
     Active Substance: SODIUM OXYBATE
     Indication: Narcolepsy
     Dosage: 1.5 GRAM, BID
     Route: 048
     Dates: start: 202106, end: 202107
  2. XYREM [Suspect]
     Active Substance: SODIUM OXYBATE
     Indication: Cataplexy
     Dosage: DOSE ADJSTMENT
     Route: 048
     Dates: start: 202107, end: 202107
  3. XYREM [Suspect]
     Active Substance: SODIUM OXYBATE
     Indication: Somnolence
     Dosage: 4.5 GRAM, BID
     Route: 048
     Dates: start: 202107, end: 2021
  4. XYREM [Suspect]
     Active Substance: SODIUM OXYBATE
     Dosage: 2.25 GRAM, BID
  5. PRECEDEX [Suspect]
     Active Substance: DEXMEDETOMIDINE HYDROCHLORIDE
     Indication: Product used for unknown indication
     Dosage: UNK
  6. DEPAKOTE [Suspect]
     Active Substance: DIVALPROEX SODIUM
     Indication: Product used for unknown indication
     Dosage: UNK
  7. HYDROMORPHONE [Concomitant]
     Active Substance: HYDROMORPHONE
     Indication: Product used for unknown indication
     Dosage: UNK
     Dates: start: 20221107

REACTIONS (4)
  - Hospitalisation [Unknown]
  - Bradycardia [Unknown]
  - Blood pressure fluctuation [Unknown]
  - Drug hypersensitivity [Unknown]
